FAERS Safety Report 11880996 (Version 1)
Quarter: 2015Q4

REPORT INFORMATION
  Report Type: Report from Study
  Country: BR (occurrence: BR)
  Receive Date: 20151230
  Receipt Date: 20151230
  Transmission Date: 20160305
  Serious: Yes (Hospitalization, Other)
  Sender: FDA-Public Use
  Company Number: BR-BRISTOL-MYERS SQUIBB COMPANY-BMS-2015-089269

PATIENT
  Sex: Male

DRUGS (1)
  1. DASATINIB [Suspect]
     Active Substance: DASATINIB
     Indication: CHRONIC MYELOID LEUKAEMIA
     Dosage: 100 MG, UNK
     Route: 048

REACTIONS (9)
  - Pyrexia [Unknown]
  - Oedema peripheral [Unknown]
  - Erysipelas [Unknown]
  - Diarrhoea [Unknown]
  - Arthropod bite [Unknown]
  - Hypertension [Unknown]
  - Vomiting [Unknown]
  - Headache [Recovering/Resolving]
  - Erythema [Unknown]
